FAERS Safety Report 10555426 (Version 6)
Quarter: 2015Q4

REPORT INFORMATION
  Report Type: Report from Study
  Country: CL (occurrence: CL)
  Receive Date: 20141030
  Receipt Date: 20151223
  Transmission Date: 20160304
  Serious: Yes (Disabling, Other)
  Sender: FDA-Public Use
  Company Number: CL-ROCHE-1483189

PATIENT
  Age: 63 Year
  Sex: Female
  Weight: 68 kg

DRUGS (4)
  1. HERCEPTIN [Suspect]
     Active Substance: TRASTUZUMAB
     Indication: BREAST CANCER
     Route: 042
     Dates: start: 20121129, end: 201409
  2. ENALAPRIL [Concomitant]
     Active Substance: ENALAPRIL
     Indication: HYPERTENSION
  3. XELODA [Suspect]
     Active Substance: CAPECITABINE
     Indication: BREAST CANCER
     Dosage: 14 DAYS PER CYCLE
     Route: 048
     Dates: start: 20150216
  4. LETROZOLE. [Suspect]
     Active Substance: LETROZOLE
     Indication: BREAST CANCER
     Route: 048
     Dates: start: 201303

REACTIONS (21)
  - Pain [Recovered/Resolved]
  - Bone pain [Not Recovered/Not Resolved]
  - Arthropathy [Unknown]
  - Asthenia [Not Recovered/Not Resolved]
  - Metastasis [Not Recovered/Not Resolved]
  - Dysarthria [Recovered/Resolved]
  - Weight decreased [Unknown]
  - Joint effusion [Not Recovered/Not Resolved]
  - Breast neoplasm [Not Recovered/Not Resolved]
  - Breast pain [Not Recovered/Not Resolved]
  - Back pain [Not Recovered/Not Resolved]
  - Diabetes mellitus [Not Recovered/Not Resolved]
  - Swelling [Unknown]
  - Dry skin [Recovered/Resolved]
  - Wound [Recovered/Resolved]
  - Fatigue [Not Recovered/Not Resolved]
  - Burning sensation [Not Recovered/Not Resolved]
  - Blood glucose increased [Not Recovered/Not Resolved]
  - Neoplasm [Not Recovered/Not Resolved]
  - Dizziness [Recovered/Resolved]
  - Fall [Unknown]

NARRATIVE: CASE EVENT DATE: 201409
